FAERS Safety Report 17480895 (Version 2)
Quarter: 2020Q1

REPORT INFORMATION
  Report Type: Report from Study
  Country: FR (occurrence: FR)
  Receive Date: 20200302
  Receipt Date: 20200311
  Transmission Date: 20200409
  Serious: Yes (Death, Hospitalization)
  Sender: FDA-Public Use
  Company Number: FR-BRISTOL-MYERS SQUIBB COMPANY-BMS-2020-017368

PATIENT
  Sex: Female

DRUGS (1)
  1. NIVOLUMAB [Suspect]
     Active Substance: NIVOLUMAB
     Indication: RENAL CELL CARCINOMA
     Dosage: 480 MG, D1 D28
     Route: 065
     Dates: start: 20191004, end: 20191104

REACTIONS (1)
  - General physical health deterioration [Fatal]

NARRATIVE: CASE EVENT DATE: 20191202
